FAERS Safety Report 9096827 (Version 1)
Quarter: 2013Q1

REPORT INFORMATION
  Report Type: Spontaneous
  Country: US (occurrence: US)
  Receive Date: 20130211
  Receipt Date: 20130211
  Transmission Date: 20140127
  Serious: No
  Sender: FDA-Public Use
  Company Number: US-B.I. PHARMACEUTICALS,INC./RIDGEFIELD-2013-BI-03594BP

PATIENT
  Age: 55 Year
  Sex: Female
  Weight: 86 kg

DRUGS (4)
  1. SPIRIVA [Suspect]
     Indication: CHRONIC OBSTRUCTIVE PULMONARY DISEASE
     Dosage: 18 MCG
     Route: 055
     Dates: start: 201209, end: 201212
  2. SPIRIVA [Suspect]
     Dosage: 18 MCG
     Route: 055
     Dates: start: 20130205
  3. ALBUTEROL [Concomitant]
     Route: 055
  4. PSYCHIATRIC MEDICATIONS [Concomitant]
     Indication: BIPOLAR DISORDER
     Route: 048

REACTIONS (4)
  - Headache [Recovered/Resolved]
  - Headache [Not Recovered/Not Resolved]
  - Haemoptysis [Recovered/Resolved]
  - Product quality issue [Recovered/Resolved]
